FAERS Safety Report 20909904 (Version 1)
Quarter: 2022Q2

REPORT INFORMATION
  Report Type: Spontaneous
  Country: EG (occurrence: EG)
  Receive Date: 20220603
  Receipt Date: 20220603
  Transmission Date: 20220720
  Serious: Yes (Other)
  Sender: FDA-Public Use
  Company Number: EG-IPCA LABORATORIES LIMITED-IPC-2022-EG-000638

PATIENT

DRUGS (1)
  1. TRAMADOL HYDROCHLORIDE [Suspect]
     Active Substance: TRAMADOL HYDROCHLORIDE
     Indication: Product used for unknown indication
     Dosage: 400-1000 MILLIGRAM
     Route: 065

REACTIONS (5)
  - Reproductive toxicity [Unknown]
  - Drug dependence [Unknown]
  - Hypogonadism male [Unknown]
  - Libido decreased [Unknown]
  - Infertility male [Unknown]
